FAERS Safety Report 8085883-9 (Version None)
Quarter: 2012Q1

REPORT INFORMATION
  Report Type: 
  Country: None (occurrence: None)
  Receive Date: 20120128
  Receipt Date: 20110415
  Transmission Date: 20120608
  Serious: No
  Sender: FDA-Public Use
  Company Number: US-ABBOTT-11P-163-0720502-00

PATIENT
  Sex: Male
  Weight: 106.69 kg

DRUGS (10)
  1. VITAMIN D [Concomitant]
     Indication: SUPPLEMENTATION THERAPY
  2. SAW PALMETTO [Concomitant]
     Indication: SUPPLEMENTATION THERAPY
  3. LISINOPRIL [Concomitant]
     Indication: HYPERTENSION
  4. CRESTOR [Concomitant]
     Indication: BLOOD CHOLESTEROL INCREASED
  5. GLUCOSAMINE [Concomitant]
     Indication: SUPPLEMENTATION THERAPY
  6. LORTAB [Concomitant]
     Indication: PAIN
  7. FISH OIL [Concomitant]
     Indication: SUPPLEMENTATION THERAPY
  8. ASCORBIC ACID [Concomitant]
     Indication: SUPPLEMENTATION THERAPY
  9. HUMIRA [Suspect]
     Indication: RHEUMATOID ARTHRITIS
     Dates: start: 20100615, end: 20110401
  10. LIDOCAINE [Concomitant]
     Indication: PAIN
     Dosage: PATCH

REACTIONS (2)
  - ARTHRALGIA [None]
  - FATIGUE [None]
